FAERS Safety Report 5124913-0 (Version None)
Quarter: 2006Q4

REPORT INFORMATION
  Report Type: 
  Country: None (occurrence: None)
  Receive Date: 20061011
  Receipt Date: 20061003
  Transmission Date: 20070319
  Serious: No
  Sender: FDA-Public Use
  Company Number: 2006AP04582

PATIENT
  Age: 27397 Day
  Sex: Female
  Weight: 70 kg

DRUGS (6)
  1. SEROQUEL [Suspect]
     Indication: SCHIZOPHRENIA
     Route: 048
     Dates: start: 20051015, end: 20060615
  2. VALPROATE SODIUM [Suspect]
     Route: 048
     Dates: end: 20051215
  3. HALOPERIDOL [Concomitant]
  4. GOPTEN [Concomitant]
  5. METFORMIN HYDROCHLORIDE [Concomitant]
  6. ZOLOFT [Concomitant]

REACTIONS (1)
  - PLATELET COUNT DECREASED [None]
